FAERS Safety Report 7169835-9 (Version None)
Quarter: 2010Q4

REPORT INFORMATION
  Report Type: 
  Country: None (occurrence: None)
  Receive Date: 20101217
  Receipt Date: 20101203
  Transmission Date: 20110411
  Serious: Yes (Other)
  Sender: FDA-Public Use
  Company Number: PHHY2010BR34279

PATIENT
  Age: 25 Year
  Sex: Female

DRUGS (2)
  1. FORASEQ [Suspect]
     Indication: ASTHMA
     Dosage: 1 DF, BID
     Dates: start: 20100525
  2. DROSPIRENONE AND ETHINYL ESTRADIOL [Concomitant]
     Indication: CONTRACEPTION
     Dosage: UNK

REACTIONS (19)
  - DAYDREAMING [None]
  - DYSPHAGIA [None]
  - DYSPNOEA [None]
  - FALL [None]
  - FORMICATION [None]
  - GAIT DISTURBANCE [None]
  - GRIP STRENGTH DECREASED [None]
  - HEART RATE INCREASED [None]
  - HYPOAESTHESIA [None]
  - HYPOAESTHESIA ORAL [None]
  - MUSCULAR WEAKNESS [None]
  - PAIN [None]
  - PALLOR [None]
  - PHARYNGEAL HYPOAESTHESIA [None]
  - SENSORY DISTURBANCE [None]
  - TONGUE PARALYSIS [None]
  - TREMOR [None]
  - WALKING DISABILITY [None]
  - WHEEZING [None]
